FAERS Safety Report 9214709 (Version 2)
Quarter: 2013Q2

REPORT INFORMATION
  Report Type: Spontaneous
  Country: US (occurrence: None)
  Receive Date: 20120827
  Receipt Date: 20121123
  Transmission Date: 20140414
  Serious: Yes (Hospitalization)
  Sender: FDA-Public Use
  Company Number: 355686

PATIENT
  Age: 60 Year
  Sex: Male
  Weight: 88.9 kg

DRUGS (7)
  1. VICTOZA (LIRAGLUTIDE) SOLUTION FOR INJECTION, 6MG/ML [Suspect]
     Indication: TYPE 2 DIABETES MELLITUS
     Route: 058
     Dates: start: 20120316, end: 20120322
  2. ALLOPURINOL (ALLOPURINOL) [Concomitant]
  3. ASPIRIN (ACETYLSALICYLIC ACID) [Concomitant]
  4. GLUCOPHAGE (METFORMIN HYDROCHLORIDE) [Concomitant]
  5. LIPITOR (ATORVASTATIN CALCIUM) [Concomitant]
  6. LISINOPRIL (LISINOPRIL) [Concomitant]
  7. TOPROL (METOPROLOL SUCCINATE) [Concomitant]

REACTIONS (1)
  - Pancreatitis [None]
